FAERS Safety Report 22651617 (Version 1)
Quarter: 2023Q2

REPORT INFORMATION
  Report Type: Spontaneous
  Country: US (occurrence: US)
  Receive Date: 20230628
  Receipt Date: 20230628
  Transmission Date: 20230722
  Serious: No
  Sender: FDA-Public Use
  Company Number: US-CTI BIOPHARMA-2023US03463

PATIENT

DRUGS (3)
  1. VONJO [Suspect]
     Active Substance: PACRITINIB
     Indication: Myelofibrosis
     Dosage: 100 MG, BID
     Route: 048
     Dates: start: 20230218
  2. JAKAFI [Concomitant]
     Active Substance: RUXOLITINIB
  3. LASIX [Concomitant]
     Active Substance: FUROSEMIDE

REACTIONS (2)
  - Dehydration [Recovering/Resolving]
  - Feeding disorder [Recovering/Resolving]
